FAERS Safety Report 13467354 (Version 2)
Quarter: 2017Q2

REPORT INFORMATION
  Report Type: Spontaneous
  Country: FR (occurrence: FR)
  Receive Date: 20170421
  Receipt Date: 20170504
  Transmission Date: 20170830
  Serious: Yes (Other)
  Sender: FDA-Public Use
  Company Number: FR-JNJFOC-20170332642

PATIENT
  Age: 51 Year
  Sex: Female

DRUGS (3)
  1. HALDOL DECANOAS [Suspect]
     Active Substance: HALOPERIDOL DECANOATE
     Indication: SCHIZOPHRENIA
     Route: 065
     Dates: start: 20161006
  2. HALDOL [Suspect]
     Active Substance: HALOPERIDOL
     Indication: SCHIZOPHRENIA
     Route: 065
     Dates: start: 20161006
  3. HALDOL DECANOAS [Suspect]
     Active Substance: HALOPERIDOL DECANOATE
     Indication: SCHIZOPHRENIA
     Dosage: 6 AMPULLAS EVERY 15 DAYS
     Route: 065
     Dates: start: 201501, end: 20161006

REACTIONS (4)
  - Prescribed overdose [Unknown]
  - Drug ineffective [Unknown]
  - Off label use [Unknown]
  - Angina pectoris [Unknown]

NARRATIVE: CASE EVENT DATE: 20161006
